FAERS Safety Report 19373807 (Version 1)
Quarter: 2021Q2

REPORT INFORMATION
  Report Type: Spontaneous
  Country: FR (occurrence: FR)
  Receive Date: 20210603
  Receipt Date: 20210603
  Transmission Date: 20210717
  Serious: Yes (Other)
  Sender: FDA-Public Use
  Company Number: FR-CELGENEUS-FRA-20210600028

PATIENT
  Age: 69 Year
  Sex: Male

DRUGS (1)
  1. VIDAZA [Suspect]
     Active Substance: AZACITIDINE
     Indication: ACUTE MYELOID LEUKAEMIA
     Dosage: 7 DAYS IN A ROW, EVERY 28 DAYS; CYCLICAL
     Route: 058
     Dates: start: 201903

REACTIONS (1)
  - Annular elastolytic giant cell granuloma [Recovering/Resolving]

NARRATIVE: CASE EVENT DATE: 201910
